FAERS Safety Report 6908410-5 (Version None)
Quarter: 2010Q3

REPORT INFORMATION
  Report Type: 
  Country: None (occurrence: None)
  Receive Date: 20100805
  Receipt Date: 20100726
  Transmission Date: 20110219
  Serious: No
  Sender: FDA-Public Use
  Company Number: US-JNJFOC-20100708343

PATIENT
  Sex: Female
  Weight: 54.43 kg

DRUGS (6)
  1. FENTANYL CITRATE [Suspect]
     Indication: NERVOUS SYSTEM DISORDER
     Dosage: NDC: 0781-7241-55
     Route: 062
  2. PERCOCET [Concomitant]
     Indication: PAIN
     Dosage: 10/325 MG
     Route: 048
  3. LEXAPRO [Concomitant]
     Indication: ANXIETY DISORDER
     Route: 048
  4. KLONOPIN [Concomitant]
     Indication: ANXIETY DISORDER
     Route: 048
  5. XANAX [Concomitant]
     Indication: ANXIETY DISORDER
     Route: 048
  6. LIPITOR [Concomitant]
     Indication: BLOOD CHOLESTEROL
     Route: 048

REACTIONS (1)
  - WRONG TECHNIQUE IN DRUG USAGE PROCESS [None]
